FAERS Safety Report 13879534 (Version 1)
Quarter: 2017Q3

REPORT INFORMATION
  Report Type: Spontaneous
  Country: CA (occurrence: CA)
  Receive Date: 20170817
  Receipt Date: 20170817
  Transmission Date: 20171127
  Serious: Yes (Other)
  Sender: FDA-Public Use
  Company Number: CA-TEVA-796210ACC

PATIENT
  Age: 49 Year
  Sex: Female
  Weight: 77.18 kg

DRUGS (2)
  1. TEVA-CLINDAMYCIN [Suspect]
     Active Substance: CLINDAMYCIN PHOSPHATE
     Indication: TOOTH INFECTION
     Dosage: 1200 MILLIGRAM DAILY;
     Route: 048
  2. RETIN-A MICRO [Concomitant]
     Active Substance: TRETINOIN

REACTIONS (4)
  - Rash generalised [Recovering/Resolving]
  - Face oedema [Recovering/Resolving]
  - Myalgia [Recovering/Resolving]
  - Pyrexia [Recovering/Resolving]
